FAERS Safety Report 8346911-6 (Version None)
Quarter: 2012Q2

REPORT INFORMATION
  Report Type: 
  Country: None (occurrence: None)
  Receive Date: 20120509
  Receipt Date: 20120502
  Transmission Date: 20120825
  Serious: Yes (Hospitalization)
  Sender: FDA-Public Use
  Company Number: JP-SANOFI-AVENTIS-2012SA022298

PATIENT
  Age: 76 Year
  Sex: Female
  Weight: 44 kg

DRUGS (14)
  1. OXALIPLATIN [Suspect]
     Route: 041
     Dates: start: 20111118, end: 20111209
  2. LEUCON [Concomitant]
     Dates: start: 20111111
  3. TULOBUTEROL [Concomitant]
     Dates: start: 20110926
  4. OXALIPLATIN [Suspect]
     Indication: GASTRIC CANCER
     Route: 041
     Dates: start: 20110716, end: 20111014
  5. OXALIPLATIN [Suspect]
     Route: 041
     Dates: start: 20120113, end: 20120316
  6. CELECOXIB [Concomitant]
     Dates: start: 20111008
  7. BETAMAC [Concomitant]
     Dates: start: 20111008
  8. TS-1 [Suspect]
     Indication: GASTRIC CANCER
     Route: 048
     Dates: start: 20110716, end: 20120322
  9. RABEPRAZOLE SODIUM [Concomitant]
  10. IRSOGLADINE MALEATE [Concomitant]
     Dates: start: 20110809
  11. FERROUS CITRATE [Concomitant]
     Dates: start: 20110716
  12. PRIMPERAN TAB [Concomitant]
     Dates: start: 20120316
  13. AMBROXOL [Concomitant]
     Dates: start: 20110730
  14. SPIROPENT [Concomitant]

REACTIONS (1)
  - SPINAL COMPRESSION FRACTURE [None]
